FAERS Safety Report 19919745 (Version 1)
Quarter: 2021Q4

REPORT INFORMATION
  Report Type: Spontaneous
  Country: CN (occurrence: CN)
  Receive Date: 20211005
  Receipt Date: 20211005
  Transmission Date: 20220303
  Serious: Yes (Other)
  Sender: FDA-Public Use
  Company Number: CN-JNJFOC-20210955889

PATIENT
  Age: 5 Year
  Sex: Male
  Weight: 16 kg

DRUGS (1)
  1. CHILDRENS MOTRIN [Suspect]
     Active Substance: IBUPROFEN
     Indication: Antipyresis
     Dosage: MEDICATION - DOSES: 4
     Route: 048
     Dates: start: 20210915, end: 20210916

REACTIONS (2)
  - White blood cell count decreased [Recovered/Resolved]
  - Platelet count decreased [Recovered/Resolved]

NARRATIVE: CASE EVENT DATE: 20210917
